FAERS Safety Report 21607192 (Version 2)
Quarter: 2023Q2

REPORT INFORMATION
  Report Type: Spontaneous
  Country: CA (occurrence: CA)
  Receive Date: 20221117
  Receipt Date: 20230601
  Transmission Date: 20230722
  Serious: Yes (Other)
  Sender: FDA-Public Use
  Company Number: CA-CELLTRION INC.-2022CA017226

PATIENT

DRUGS (13)
  1. INFLECTRA [Suspect]
     Active Substance: INFLIXIMAB-DYYB
     Indication: Colitis ulcerative
     Dosage: 5 MG/KG, 0, 2, 6 WEEKS THEN EVERY 8 WEEKS
     Route: 042
     Dates: start: 20220920
  2. INFLECTRA [Suspect]
     Active Substance: INFLIXIMAB-DYYB
     Dosage: 5 MG/KG, 0, 2, 6 WEEKS THEN EVERY 8 WEEKS
     Route: 042
     Dates: start: 20221005
  3. INFLECTRA [Suspect]
     Active Substance: INFLIXIMAB-DYYB
     Dosage: 5 MG/KG, 0, 2, 6 WEEKS THEN EVERY 8 WEEKS (WAS RECEIVED 23 DAYS AFTER LAST ONE)
     Route: 042
     Dates: start: 20221013
  4. INFLECTRA [Suspect]
     Active Substance: INFLIXIMAB-DYYB
     Dosage: 5 MG/KG, 0, 2, 6 WEEKS THEN EVERY 8 WEEKS
     Route: 042
     Dates: start: 20221101
  5. INFLECTRA [Suspect]
     Active Substance: INFLIXIMAB-DYYB
     Dosage: 5 MG/KG, Q 0, 2, 6 WEEKS THEN EVERY 8 WEEKS
     Route: 042
     Dates: start: 20230103
  6. MESALAMINE [Concomitant]
     Active Substance: MESALAMINE
     Dosage: 1.2 G, DAILY, 2 TABLETS
     Route: 065
  7. MESALAMINE [Concomitant]
     Active Substance: MESALAMINE
     Dosage: 4 DF, INCREASED, FOR ABOUT 2 WEEKS
  8. MESALAMINE [Concomitant]
     Active Substance: MESALAMINE
     Dosage: 1 DF, DOSAGE UNKNOWN
     Route: 065
  9. MESALAMINE [Concomitant]
     Active Substance: MESALAMINE
     Dosage: 100 MG
     Route: 065
  10. LATANOPROST [Concomitant]
     Active Substance: LATANOPROST
     Dosage: 1 DF, DOSAGE UNKNOWN
     Route: 065
  11. MESALAMINE [Concomitant]
     Active Substance: MESALAMINE
     Dosage: 1 DF, 2X/DAY, IN ENEMA
     Route: 065
  12. MESALAMINE [Concomitant]
     Active Substance: MESALAMINE
     Dosage: 1 DF, DOSAGE UNKNOWN
     Route: 065
  13. CHOLECALCIFEROL [Concomitant]
     Active Substance: CHOLECALCIFEROL
     Dosage: 1 DF, DOSAGE UNKNOWN
     Route: 065

REACTIONS (17)
  - Tuberculosis [Unknown]
  - Inappropriate schedule of product administration [Unknown]
  - Headache [Recovering/Resolving]
  - Gait inability [Recovered/Resolved]
  - Chest pain [Recovered/Resolved]
  - Pain in extremity [Recovered/Resolved]
  - Headache [Recovered/Resolved]
  - Fatigue [Recovered/Resolved]
  - Dyspnoea [Recovered/Resolved]
  - Anxiety [Not Recovered/Not Resolved]
  - Fatigue [Not Recovered/Not Resolved]
  - Malaise [Not Recovered/Not Resolved]
  - Paraesthesia [Recovered/Resolved]
  - Frequent bowel movements [Not Recovered/Not Resolved]
  - Dizziness [Recovered/Resolved]
  - Hot flush [Not Recovered/Not Resolved]
  - Night sweats [Not Recovered/Not Resolved]

NARRATIVE: CASE EVENT DATE: 20220101
